FAERS Safety Report 13661871 (Version 3)
Quarter: 2017Q4

REPORT INFORMATION
  Report Type: Report from Study
  Country: US (occurrence: US)
  Receive Date: 20170616
  Receipt Date: 20171011
  Transmission Date: 20180320
  Serious: Yes (Death, Life-Threatening, Hospitalization)
  Sender: FDA-Public Use
  Company Number: PHEH2017US018271

PATIENT
  Age: 83 Year
  Sex: Female
  Weight: 140 kg

DRUGS (1)
  1. ENTRESTO [Suspect]
     Active Substance: SACUBITRIL\VALSARTAN
     Indication: CARDIAC FAILURE CHRONIC
     Dosage: 1 DF (49 MG SACUBITRIL, 51 MG VALSARTAN), BID
     Route: 048
     Dates: start: 20170303

REACTIONS (8)
  - Headache [Recovered/Resolved]
  - Death [Fatal]
  - Subdural haematoma [Unknown]
  - Respiratory failure [Unknown]
  - Chronic kidney disease [Unknown]
  - Fall [Unknown]
  - Haematoma [Unknown]
  - Intracranial pressure increased [Unknown]

NARRATIVE: CASE EVENT DATE: 20170530
